FAERS Safety Report 9353584 (Version 1)
Quarter: 2013Q2

REPORT INFORMATION
  Report Type: Spontaneous
  Country: CH (occurrence: CH)
  Receive Date: 20130618
  Receipt Date: 20130618
  Transmission Date: 20140414
  Serious: Yes (Death, Other)
  Sender: FDA-Public Use
  Company Number: CH-ROXANE LABORATORIES, INC.-2013-RO-00952RO

PATIENT
  Age: 58 Year
  Sex: Female

DRUGS (3)
  1. LETROZOLE [Suspect]
     Indication: BREAST CANCER STAGE III
     Dosage: 2.5 MG
  2. CISPLATIN [Suspect]
     Indication: SMALL CELL LUNG CANCER
  3. ETOPOSIDE [Suspect]
     Indication: SMALL CELL LUNG CANCER

REACTIONS (4)
  - Disease progression [Fatal]
  - Cerebrovascular accident [Recovered/Resolved]
  - Cerebral thrombosis [Recovered/Resolved]
  - Hemianopia homonymous [Unknown]
